FAERS Safety Report 6825919-3 (Version None)
Quarter: 2010Q3

REPORT INFORMATION
  Report Type: 
  Country: None (occurrence: None)
  Receive Date: 20100709
  Receipt Date: 20100629
  Transmission Date: 20110219
  Serious: Yes (Hospitalization)
  Sender: FDA-Public Use
  Company Number: DE-JNJFOC-20100700715

PATIENT
  Age: 21 Year
  Sex: Male
  Weight: 108 kg

DRUGS (2)
  1. TOPIRAMATE [Suspect]
     Indication: EPILEPSY
     Route: 048
  2. TOPIRAMATE [Suspect]
     Route: 048

REACTIONS (6)
  - COGNITIVE DISORDER [None]
  - NYSTAGMUS [None]
  - OVERDOSE [None]
  - STATUS EPILEPTICUS [None]
  - SUICIDE ATTEMPT [None]
  - TREATMENT NONCOMPLIANCE [None]
